FAERS Safety Report 26120101 (Version 1)
Quarter: 2025Q4

REPORT INFORMATION
  Report Type: Spontaneous
  Country: US (occurrence: US)
  Receive Date: 20251204
  Receipt Date: 20251204
  Transmission Date: 20260118
  Serious: No
  Sender: CELLTRION
  Company Number: US-CELLTRION INC.-2025US037174

PATIENT

DRUGS (2)
  1. ADALIMUMAB [Suspect]
     Active Substance: ADALIMUMAB
     Indication: Felty^s syndrome
     Dosage: 40MG/0.4ML EVERY OTHER WEEK
     Route: 058
  2. ADALIMUMAB [Suspect]
     Active Substance: ADALIMUMAB

REACTIONS (3)
  - Device malfunction [Unknown]
  - Drug dose omission by device [Unknown]
  - Intentional product use issue [Unknown]

NARRATIVE: CASE EVENT DATE: 20251005
